FAERS Safety Report 23924943 (Version 2)
Quarter: 2024Q4

REPORT INFORMATION
  Report Type: Spontaneous
  Country: US (occurrence: US)
  Receive Date: 20240531
  Receipt Date: 20241120
  Transmission Date: 20250115
  Serious: No
  Sender: PFIZER
  Company Number: US-PFIZER INC-202400181674

PATIENT
  Sex: Female

DRUGS (1)
  1. ETRASIMOD [Suspect]
     Active Substance: ETRASIMOD
     Indication: Colitis ulcerative
     Dosage: 2 MG, DAILY

REACTIONS (3)
  - Alopecia [Unknown]
  - Gingival hypertrophy [Unknown]
  - Granuloma annulare [Unknown]
